FAERS Safety Report 8510287-1 (Version None)
Quarter: 2012Q3

REPORT INFORMATION
  Report Type: 
  Country: None (occurrence: None)
  Receive Date: 20120713
  Receipt Date: 20120703
  Transmission Date: 20120928
  Serious: Yes (Death, Hospitalization)
  Sender: FDA-Public Use
  Company Number: PT-BAXTER-2012BAX010344

PATIENT
  Sex: Female

DRUGS (10)
  1. SODIUM BICARBONATE [Suspect]
     Route: 033
     Dates: end: 20120702
  2. IRON [Concomitant]
  3. FUROSEMIDE [Concomitant]
  4. ALLOPURINOL [Concomitant]
  5. FOLIC ACID [Concomitant]
  6. SIMVASTATIN [Concomitant]
  7. CINACALCET HYDROCHLORIDE [Concomitant]
  8. DARBEPOETIN [Concomitant]
  9. CALCITRIOL [Concomitant]
  10. EXTRANEAL [Suspect]
     Route: 033
     Dates: end: 20120702

REACTIONS (2)
  - PULMONARY EMBOLISM [None]
  - OSTEOMYELITIS [None]
